FAERS Safety Report 25816128 (Version 1)
Quarter: 2025Q3

REPORT INFORMATION
  Report Type: Spontaneous
  Country: US (occurrence: US)
  Receive Date: 20250918
  Receipt Date: 20250918
  Transmission Date: 20251020
  Serious: No
  Sender: BIONPHARMA INC.
  Company Number: US-Bion-015254

PATIENT
  Age: 77 Year
  Sex: Female
  Weight: 117.93 kg

DRUGS (1)
  1. ACETAMINOPHEN\IBUPROFEN [Suspect]
     Active Substance: ACETAMINOPHEN\IBUPROFEN
     Indication: Pain
     Route: 048

REACTIONS (2)
  - Poor quality product administered [Unknown]
  - No adverse event [Unknown]
